FAERS Safety Report 8560112-8 (Version None)
Quarter: 2012Q3

REPORT INFORMATION
  Report Type: 
  Country: None (occurrence: None)
  Receive Date: 20120723
  Receipt Date: 20120713
  Transmission Date: 20120928
  Serious: Yes (Life-Threatening, Other)
  Sender: FDA-Public Use
  Company Number: 2012P1049374

PATIENT
  Age: 30 Year
  Sex: Male

DRUGS (1)
  1. ALBENDAZOLE (NO PREF. NAME) [Suspect]
     Indication: ASCARIASIS
     Dosage: 0.4 GM;PO
     Route: 048
     Dates: start: 20110531, end: 20110531

REACTIONS (1)
  - DIARRHOEA [None]
